FAERS Safety Report 7336447-3 (Version None)
Quarter: 2011Q1

REPORT INFORMATION
  Report Type: 
  Country: None (occurrence: None)
  Receive Date: 20110307
  Receipt Date: 20110209
  Transmission Date: 20110831
  Serious: No
  Sender: FDA-Public Use
  Company Number: US-B.I. PHARMACEUTICALS,INC./RIDGEFIELD-2011-BP-05124BP

PATIENT
  Sex: Female

DRUGS (5)
  1. SINGULAIR [Concomitant]
     Indication: ASTHMA
     Dosage: 10 MG
     Route: 048
     Dates: start: 20100501
  2. CEPHALEXIN [Concomitant]
     Indication: BLADDER DISORDER
     Dosage: 250 MG
     Route: 048
     Dates: start: 20101201
  3. PRADAXA [Suspect]
     Indication: ATRIAL FIBRILLATION
     Dosage: 300 MG
     Route: 048
     Dates: start: 20110207
  4. NAMENDA [Concomitant]
     Indication: MEMORY IMPAIRMENT
     Dosage: 5 MG
     Route: 048
     Dates: start: 20110101
  5. FUROSEMIDE [Concomitant]
     Indication: FLUID RETENTION
     Dosage: 40 MG
     Route: 048
     Dates: start: 20110101

REACTIONS (1)
  - HEADACHE [None]
